FAERS Safety Report 22621259 (Version 1)
Quarter: 2023Q2

REPORT INFORMATION
  Report Type: Spontaneous
  Country: TW (occurrence: TW)
  Receive Date: 20230620
  Receipt Date: 20230620
  Transmission Date: 20230722
  Serious: Yes (Hospitalization)
  Sender: FDA-Public Use
  Company Number: TW-PFIZER INC-PV202300105920

PATIENT
  Age: 71 Year
  Sex: Female

DRUGS (7)
  1. XELJANZ [Suspect]
     Active Substance: TOFACITINIB CITRATE
     Indication: Rheumatoid arthritis
     Dosage: 5 MG, BID
     Route: 048
     Dates: start: 20150821
  2. CELEBREX [Concomitant]
     Active Substance: CELECOXIB
     Dosage: 200 MG, BID
     Route: 048
     Dates: end: 20230611
  3. CYCLOSPORINE [Concomitant]
     Active Substance: CYCLOSPORINE
     Dosage: 25 MG, BID
     Route: 048
     Dates: end: 20230611
  4. PREDNISOLONE [Concomitant]
     Active Substance: PREDNISOLONE
     Dosage: 5 MG, QD
     Route: 048
  5. COBAMAMIDE [Concomitant]
     Active Substance: COBAMAMIDE
     Dosage: 0.5 MG, BID
     Route: 048
     Dates: end: 20230611
  6. TRACETON [Concomitant]
     Dosage: 1 DF, AS NEEDED (EVERY 6 HOURS, PRN)
     Route: 048
     Dates: end: 20230611
  7. FAMOTIDINE [Concomitant]
     Active Substance: FAMOTIDINE
     Dosage: 20 MG, BID
     Route: 048
     Dates: end: 20230611

REACTIONS (1)
  - Intraventricular haemorrhage [Unknown]

NARRATIVE: CASE EVENT DATE: 20230611
